FAERS Safety Report 6403008-X (Version None)
Quarter: 2009Q4

REPORT INFORMATION
  Report Type: 
  Country: None (occurrence: None)
  Receive Date: 20091013
  Receipt Date: 20050527
  Transmission Date: 20100525
  Serious: Yes (Death, Hospitalization)
  Sender: FDA-Public Use
  Company Number: 2009008926

PATIENT
  Age: 55 Year
  Sex: Male

DRUGS (3)
  1. ACTIQ [Suspect]
     Indication: CANCER PAIN
     Dosage: BU
     Route: 002
  2. DURAGESIC /00174601/ (FENTANYL) [Concomitant]
  3. ZOFRAN /00955301/ (ONDANSETRON) [Concomitant]

REACTIONS (1)
  - DEATH [None]
